FAERS Safety Report 7451219-7 (Version None)
Quarter: 2011Q2

REPORT INFORMATION
  Report Type: 
  Country: None (occurrence: None)
  Receive Date: 20110429
  Receipt Date: 20110429
  Transmission Date: 20111010
  Serious: No
  Sender: FDA-Public Use
  Company Number: None

PATIENT
  Sex: Female
  Weight: 50.7 kg

DRUGS (1)
  1. ENBREL [Suspect]
     Indication: ANKYLOSING SPONDYLITIS
     Dosage: 25 MG QW SQ
     Route: 058
     Dates: start: 20100323

REACTIONS (4)
  - PARAESTHESIA [None]
  - FATIGUE [None]
  - MYALGIA [None]
  - ASTHENIA [None]
